FAERS Safety Report 4755894-7 (Version None)
Quarter: 2005Q3

REPORT INFORMATION
  Report Type: 
  Country: None (occurrence: None)
  Receive Date: 20050830
  Receipt Date: 20050726
  Transmission Date: 20060218
  Serious: No
  Sender: FDA-Public Use
  Company Number: US-BRISTOL-MYERS SQUIBB COMPANY-13051156

PATIENT
  Age: 63 Year
  Sex: Female

DRUGS (2)
  1. ERBITUX [Suspect]
     Indication: COLON CANCER
     Dates: start: 20050601, end: 20050601
  2. CAMPTOSAR [Concomitant]
     Dates: start: 20050620, end: 20050620

REACTIONS (1)
  - RASH [None]
